FAERS Safety Report 8606113-2 (Version None)
Quarter: 2012Q3

REPORT INFORMATION
  Report Type: 
  Country: None (occurrence: None)
  Receive Date: 20120820
  Receipt Date: 20120814
  Transmission Date: 20120928
  Serious: No
  Sender: FDA-Public Use
  Company Number: US-B.I. PHARMACEUTICALS,INC./RIDGEFIELD-2012-BP-19268BP

PATIENT
  Sex: Male
  Weight: 62 kg

DRUGS (5)
  1. SPIRIVA [Suspect]
     Route: 048
     Dates: start: 20120814, end: 20120814
  2. PREDNISONE [Concomitant]
     Indication: DECREASED APPETITE
     Dosage: 10 MG
     Route: 048
     Dates: start: 20120810
  3. SPIRIVA [Suspect]
     Indication: CHRONIC OBSTRUCTIVE PULMONARY DISEASE
     Dosage: 18 MCG
     Route: 055
     Dates: start: 20120801
  4. PREDNISONE [Concomitant]
     Indication: WEIGHT GAIN POOR
  5. FERROUS SULFATE TAB [Concomitant]
     Indication: IRON DEFICIENCY ANAEMIA
     Route: 048
     Dates: start: 20110101

REACTIONS (5)
  - NASAL DRYNESS [None]
  - HEADACHE [None]
  - INCORRECT ROUTE OF DRUG ADMINISTRATION [None]
  - WEIGHT DECREASED [None]
  - DECREASED APPETITE [None]
